FAERS Safety Report 7265021-2 (Version None)
Quarter: 2011Q1

REPORT INFORMATION
  Report Type: 
  Country: None (occurrence: None)
  Receive Date: 20110131
  Receipt Date: 20100907
  Transmission Date: 20110831
  Serious: Yes (Hospitalization)
  Sender: FDA-Public Use
  Company Number: US-BAYER-201035788NA

PATIENT
  Sex: Female

DRUGS (14)
  1. ZANTAC [Concomitant]
  2. YAZ [Suspect]
     Indication: ACNE
     Dosage: 1 DF, ONCE
     Route: 048
     Dates: start: 20050101, end: 20080101
  3. ALEVE [Concomitant]
  4. NAPROXEN [Concomitant]
     Indication: MUSCLE SPASMS
     Dosage: UNK
     Dates: start: 20080101
  5. MOTRIN [Concomitant]
  6. YAZ [Suspect]
     Indication: MENORRHAGIA
  7. OCELLA [Suspect]
     Indication: MENORRHAGIA
  8. ALBUTEROL INHALER [Concomitant]
     Indication: ASTHMA
  9. ANAPROX [Concomitant]
     Indication: DYSMENORRHOEA
     Dosage: 1 DF, UNK
  10. YASMIN [Suspect]
     Indication: ACNE
     Dosage: 1 DF, ONCE
     Route: 048
     Dates: start: 20050101, end: 20080101
  11. MIDOL IB [Concomitant]
  12. METFORMIN [Concomitant]
     Dosage: 1 DF, UNK
  13. YASMIN [Suspect]
     Indication: MENORRHAGIA
  14. OCELLA [Suspect]
     Indication: ACNE
     Dosage: 1 DF, ONCE
     Route: 048
     Dates: start: 20050101, end: 20080101

REACTIONS (5)
  - CHOLECYSTITIS CHRONIC [None]
  - GALLBLADDER DISORDER [None]
  - ABDOMINAL PAIN [None]
  - VOMITING [None]
  - NAUSEA [None]
